FAERS Safety Report 25460600 (Version 1)
Quarter: 2025Q2

REPORT INFORMATION
  Report Type: Spontaneous
  Country: US (occurrence: US)
  Receive Date: 20250620
  Receipt Date: 20250620
  Transmission Date: 20250717
  Serious: No
  Sender: ROCHE
  Company Number: US-ROCHE-10000316228

PATIENT
  Age: 67 Year
  Sex: Female
  Weight: 74.59 kg

DRUGS (2)
  1. XOLAIR [Suspect]
     Active Substance: OMALIZUMAB
     Indication: Asthma
     Dosage: FIRST 150 MG PREFILLED SYRINGE IN LEFT UPPER ARM (ON THE SAME DAY AS THE SECOND DOSE)
     Route: 058
     Dates: start: 20230217, end: 20250606
  2. XOLAIR [Suspect]
     Active Substance: OMALIZUMAB
     Dosage: SECOND 150 MG PREFILLED SYRINGE, GIVE 75 MG IN RIGHT UPPER ARM (ON THE SAME DAY AS THE FIRST DOSE)
     Route: 058
     Dates: start: 20230217, end: 20250606

REACTIONS (2)
  - Pain [Not Recovered/Not Resolved]
  - Back injury [Unknown]

NARRATIVE: CASE EVENT DATE: 20240101
